FAERS Safety Report 6852210-1 (Version None)
Quarter: 2010Q3

REPORT INFORMATION
  Report Type: 
  Country: None (occurrence: None)
  Receive Date: 20100717
  Receipt Date: 20080107
  Transmission Date: 20110219
  Serious: No
  Sender: FDA-Public Use
  Company Number: US-PFIZER INC-2007095271

PATIENT
  Sex: Female
  Weight: 61.4 kg

DRUGS (5)
  1. CHANTIX [Suspect]
     Indication: SMOKING CESSATION THERAPY
     Dates: start: 20071018, end: 20071101
  2. HYDROCODONE [Concomitant]
  3. PAMELOR [Concomitant]
  4. XANAX [Concomitant]
  5. ADVAIR DISKUS 100/50 [Concomitant]
     Dosage: 250/50

REACTIONS (3)
  - BLOOD PRESSURE INCREASED [None]
  - HEADACHE [None]
  - MOOD SWINGS [None]
